FAERS Safety Report 5318566-6 (Version None)
Quarter: 2007Q2

REPORT INFORMATION
  Report Type: 
  Country: None (occurrence: None)
  Receive Date: 20070508
  Receipt Date: 20070427
  Transmission Date: 20071010
  Serious: Yes (Other)
  Sender: FDA-Public Use
  Company Number: ES-JNJFOC-20070404994

PATIENT
  Sex: Male

DRUGS (2)
  1. REMICADE [Suspect]
     Indication: BEHCET'S SYNDROME
  2. METHOTREXATE [Concomitant]

REACTIONS (2)
  - VISION BLURRED [None]
  - VISUAL EVOKED POTENTIALS ABNORMAL [None]
